FAERS Safety Report 7542197-0 (Version None)
Quarter: 2011Q2

REPORT INFORMATION
  Report Type: 
  Country: None (occurrence: None)
  Receive Date: 20110613
  Receipt Date: 20110602
  Transmission Date: 20111010
  Serious: Yes (Hospitalization)
  Sender: FDA-Public Use
  Company Number: BR-ASTRAZENECA-2011SE34519

PATIENT
  Age: 48 Year
  Sex: Female
  Weight: 63 kg

DRUGS (4)
  1. NEXIUM [Suspect]
     Indication: GASTRITIS
     Route: 048
     Dates: start: 20110504
  2. NEXIUM [Suspect]
     Route: 048
     Dates: start: 20110516
  3. NEXIUM [Suspect]
     Route: 048
     Dates: start: 20110601, end: 20110602
  4. DIGEPLUS [Concomitant]
     Route: 048
     Dates: start: 20110501

REACTIONS (8)
  - C-REACTIVE PROTEIN INCREASED [None]
  - ARTHRALGIA [None]
  - SWELLING FACE [None]
  - URTICARIA [None]
  - ABDOMINAL PAIN [None]
  - RASH [None]
  - WHITE BLOOD CELL COUNT INCREASED [None]
  - PAIN [None]
